FAERS Safety Report 7777027-5 (Version None)
Quarter: 2011Q3

REPORT INFORMATION
  Report Type: 
  Country: None (occurrence: None)
  Receive Date: 20110926
  Receipt Date: 20110926
  Transmission Date: 20111222
  Serious: Yes (Other)
  Sender: FDA-Public Use
  Company Number: None

PATIENT
  Age: 36 Year
  Sex: Female
  Weight: 46.72 kg

DRUGS (1)
  1. LOESTRIN 24 FE [Suspect]
     Dosage: 1
     Route: 048

REACTIONS (4)
  - ANXIETY DISORDER [None]
  - MENTAL STATUS CHANGES [None]
  - MENTAL DISORDER [None]
  - BASEDOW'S DISEASE [None]
